FAERS Safety Report 7511387-5 (Version None)
Quarter: 2011Q2

REPORT INFORMATION
  Report Type: 
  Country: None (occurrence: None)
  Receive Date: 20110531
  Receipt Date: 20110516
  Transmission Date: 20111010
  Serious: Yes (Other)
  Sender: FDA-Public Use
  Company Number: US-BAYER-201027086NA

PATIENT
  Age: 21 Year
  Sex: Female
  Weight: 134 kg

DRUGS (5)
  1. YAZ [Suspect]
     Indication: CONTRACEPTION
     Dosage: UNK
     Route: 048
     Dates: start: 20090301, end: 20090701
  2. YASMIN [Suspect]
     Indication: CONTRACEPTION
     Dosage: UNK
     Route: 048
     Dates: start: 20030301, end: 20030901
  3. YAZ [Suspect]
     Indication: MENSTRUATION IRREGULAR
  4. YASMIN [Suspect]
     Indication: MENSTRUATION IRREGULAR
  5. IUD NOS [Concomitant]
     Dosage: UNK
     Dates: start: 20040301, end: 20090519

REACTIONS (7)
  - ABDOMINAL PAIN UPPER [None]
  - NAUSEA [None]
  - CHOLELITHIASIS [None]
  - HEPATIC FUNCTION ABNORMAL [None]
  - ABDOMINAL PAIN [None]
  - CHOLECYSTITIS [None]
  - CHEST PAIN [None]
